FAERS Safety Report 19860360 (Version 1)
Quarter: 2021Q3

REPORT INFORMATION
  Report Type: Spontaneous
  Country: US (occurrence: US)
  Receive Date: 20210920
  Receipt Date: 20210920
  Transmission Date: 20211014
  Serious: Yes (Other)
  Sender: FDA-Public Use
  Company Number: None

PATIENT
  Sex: Female

DRUGS (2)
  1. PRIMIDONE. [Suspect]
     Active Substance: PRIMIDONE
     Dosage: ?          QUANTITY:1/2 ONCE A DAY;?
  2. CARBAMAZEPINE. [Suspect]
     Active Substance: CARBAMAZEPINE
     Indication: TREMOR
     Dosage: ?          QUANTITY:1 TWICE A DAY;?
     Route: 048

REACTIONS (5)
  - Fall [None]
  - Confusional state [None]
  - Agitation [None]
  - Dizziness [None]
  - Amnesia [None]
